FAERS Safety Report 14529553 (Version 1)
Quarter: 2018Q1

REPORT INFORMATION
  Report Type: Spontaneous
  Country: US (occurrence: US)
  Receive Date: 20180213
  Receipt Date: 20180213
  Transmission Date: 20180509
  Serious: Yes (Disabling)
  Sender: FDA-Public Use
  Company Number: None

PATIENT
  Age: 87 Year
  Sex: Female
  Weight: 42.64 kg

DRUGS (1)
  1. LATANAPROST OPHTHALMIC SOLUTION 0.005% [Suspect]
     Active Substance: LATANOPROST
     Indication: GLAUCOMA
     Dosage: DATES - 2  + 1/2 YEARS AGO

REACTIONS (4)
  - Nasopharyngitis [None]
  - Influenza like illness [None]
  - Oropharyngeal pain [None]
  - Upper respiratory tract infection [None]

NARRATIVE: CASE EVENT DATE: 20171231
